FAERS Safety Report 10489378 (Version 2)
Quarter: 2014Q4

REPORT INFORMATION
  Report Type: Spontaneous
  Country: CH (occurrence: CH)
  Receive Date: 20141002
  Receipt Date: 20141002
  Transmission Date: 20150528
  Serious: Yes (Other)
  Sender: FDA-Public Use
  Company Number: CH-BAYER-2014-023997

PATIENT
  Age: 35 Year
  Sex: Female
  Weight: 69 kg

DRUGS (1)
  1. ULTRAVIST [Suspect]
     Active Substance: IOPROMIDE
     Indication: HYSTEROSALPINGOGRAM
     Dosage: DOSAGE OF ULTRAVIST IS NOT REPORTED
     Route: 015

REACTIONS (3)
  - Cervix dystocia [None]
  - Maternal exposure during pregnancy [None]
  - Foetal distress syndrome [None]

NARRATIVE: CASE EVENT DATE: 201409
